FAERS Safety Report 8153001-4 (Version None)
Quarter: 2012Q1

REPORT INFORMATION
  Report Type: 
  Country: None (occurrence: None)
  Receive Date: 20120221
  Receipt Date: 20120217
  Transmission Date: 20120608
  Serious: No
  Sender: FDA-Public Use
  Company Number: US-PFIZER INC-2012043517

PATIENT
  Sex: Male

DRUGS (5)
  1. ACETAMINOPHEN [Suspect]
     Dosage: UNK
  2. DOXYCYCLINE CALCIUM [Suspect]
     Dosage: UNK
  3. ACETYLSALICYLIC ACID SRT [Suspect]
     Dosage: UNK
  4. LAMICTAL [Suspect]
     Dosage: UNK
  5. PROCAINE HYDROCHLORIDE [Suspect]
     Dosage: UNK

REACTIONS (1)
  - DRUG HYPERSENSITIVITY [None]
